FAERS Safety Report 9997179 (Version 1)
Quarter: 2014Q1

REPORT INFORMATION
  Report Type: Spontaneous
  Country: US (occurrence: US)
  Receive Date: 20140311
  Receipt Date: 20140311
  Transmission Date: 20141002
  Serious: No
  Sender: FDA-Public Use
  Company Number: US-TEVA-467951USA

PATIENT
  Age: 32 Year
  Sex: Female
  Weight: 48.58 kg

DRUGS (1)
  1. PARAGARD 380A [Suspect]
     Indication: CONTRACEPTION
     Route: 015
     Dates: start: 20140113, end: 20140304

REACTIONS (1)
  - Device expulsion [Recovered/Resolved]
